FAERS Safety Report 6709336-2 (Version None)
Quarter: 2010Q2

REPORT INFORMATION
  Report Type: 
  Country: None (occurrence: None)
  Receive Date: 20100504
  Receipt Date: 20100429
  Transmission Date: 20101027
  Serious: Yes (Other)
  Sender: FDA-Public Use
  Company Number: GB-PFIZER INC-2010054175

PATIENT
  Age: 76 Year
  Sex: Female

DRUGS (2)
  1. DEPO-MEDROL [Suspect]
     Indication: OSTEOARTHRITIS
     Dosage: UNK
     Route: 014
     Dates: start: 20100428
  2. MARCAINE [Concomitant]
     Dosage: UNK

REACTIONS (6)
  - BLOOD PRESSURE DECREASED [None]
  - FEELING ABNORMAL [None]
  - HYPERSENSITIVITY [None]
  - MUSCLE SPASMS [None]
  - NAUSEA [None]
  - RASH [None]
